APPROVED DRUG PRODUCT: NAPROXEN
Active Ingredient: NAPROXEN
Strength: 25MG/ML
Dosage Form/Route: SUSPENSION;ORAL
Application: A212705 | Product #001 | TE Code: AB
Applicant: AMNEAL PHARMACEUTICALS LLC
Approved: Jul 31, 2020 | RLD: No | RS: No | Type: RX